FAERS Safety Report 8387498-1 (Version None)
Quarter: 2012Q2

REPORT INFORMATION
  Report Type: 
  Country: None (occurrence: None)
  Receive Date: 20120525
  Receipt Date: 20120517
  Transmission Date: 20120825
  Serious: Yes (Other)
  Sender: FDA-Public Use
  Company Number: JP-VERTEX PHARMACEUTICALS INC.-AE-2012-004724

PATIENT
  Age: 52 Year
  Sex: Male

DRUGS (21)
  1. PEG-INTRON [Concomitant]
     Indication: HEPATITIS C
     Route: 058
     Dates: start: 20120207, end: 20120313
  2. PEG-INTRON [Concomitant]
     Route: 058
     Dates: start: 20120417, end: 20120501
  3. OLMESARTAN MEDOXOMIL [Concomitant]
     Route: 048
     Dates: start: 20120508
  4. AMLODIPINE BESYLATE [Concomitant]
     Route: 048
     Dates: start: 20110606
  5. REBETOL [Concomitant]
     Route: 048
     Dates: start: 20120313, end: 20120318
  6. REBETOL [Concomitant]
     Route: 048
     Dates: start: 20120501, end: 20120507
  7. NESINA [Concomitant]
     Route: 048
     Dates: start: 20120113
  8. TELAVIC (TELAPREVIR) [Suspect]
     Route: 048
     Dates: start: 20120403, end: 20120416
  9. TELAVIC (TELAPREVIR) [Suspect]
     Route: 048
     Dates: start: 20120417, end: 20120508
  10. REBETOL [Concomitant]
     Route: 048
     Dates: start: 20120403, end: 20120423
  11. REBETOL [Concomitant]
     Route: 048
     Dates: start: 20120508
  12. PEG-INTRON [Concomitant]
     Route: 058
     Dates: start: 20120403, end: 20120403
  13. PEG-INTRON [Concomitant]
     Route: 058
     Dates: start: 20120410, end: 20120410
  14. PEG-INTRON [Concomitant]
     Route: 058
     Dates: start: 20120508
  15. REBETOL [Concomitant]
     Route: 048
     Dates: start: 20120424, end: 20120430
  16. REBETOL [Concomitant]
     Route: 048
     Dates: start: 20120306, end: 20120312
  17. URSO 250 [Concomitant]
     Route: 048
     Dates: end: 20120312
  18. TELAVIC (TELAPREVIR) [Suspect]
     Indication: HEPATITIS C
     Route: 048
     Dates: start: 20120207, end: 20120318
  19. REBETOL [Concomitant]
     Indication: HEPATITIS C
     Route: 048
     Dates: start: 20120207, end: 20120305
  20. OLMESARTAN MEDOXOMIL [Concomitant]
     Route: 048
     Dates: start: 20110606, end: 20120507
  21. CONFATANIN [Concomitant]
     Route: 048
     Dates: start: 20120206, end: 20120318

REACTIONS (4)
  - NEUTROPHIL COUNT DECREASED [None]
  - HAEMOGLOBIN DECREASED [None]
  - WHITE BLOOD CELL COUNT DECREASED [None]
  - HYPERURICAEMIA [None]
